FAERS Safety Report 19593578 (Version 1)
Quarter: 2021Q3

REPORT INFORMATION
  Report Type: Spontaneous
  Country: CA (occurrence: CA)
  Receive Date: 20210722
  Receipt Date: 20210722
  Transmission Date: 20211014
  Serious: Yes (Hospitalization, Other)
  Sender: FDA-Public Use
  Company Number: CA-RECORDATI RARE DISEASE INC.-2021002637

PATIENT
  Age: 37 Year
  Sex: Male

DRUGS (1)
  1. PANHEMATIN [Suspect]
     Active Substance: HEMIN
     Indication: PORPHYRIA
     Dosage: 268 MILLIGRAM, QD
     Route: 042

REACTIONS (8)
  - Injection site discolouration [Unknown]
  - Injection site inflammation [Unknown]
  - Injection site erythema [Unknown]
  - Injection site induration [Unknown]
  - Phlebitis superficial [Unknown]
  - Thrombosis [Unknown]
  - Off label use [None]
  - Injection site pain [Unknown]
